FAERS Safety Report 10641245 (Version 2)
Quarter: 2015Q1

REPORT INFORMATION
  Report Type: Spontaneous
  Country: IT (occurrence: IT)
  Receive Date: 20141209
  Receipt Date: 20150223
  Transmission Date: 20150720
  Serious: Yes (Hospitalization)
  Sender: FDA-Public Use
  Company Number: IT-PFIZER INC-2014335183

PATIENT
  Age: 76 Year
  Sex: Male

DRUGS (13)
  1. LASIX [Concomitant]
     Active Substance: FUROSEMIDE
  2. ESOMEPRAZOLE SODIUM. [Concomitant]
     Active Substance: ESOMEPRAZOLE SODIUM
  3. KANRENOL [Concomitant]
     Active Substance: CANRENOATE POTASSIUM
  4. FULCROSUPRA [Concomitant]
     Active Substance: FENOFIBRATE
  5. NOVONORM [Concomitant]
     Active Substance: REPAGLINIDE
  6. AMIODAR [Concomitant]
     Active Substance: AMIODARONE
     Dosage: 5 DF, UNK
     Dates: start: 20110101, end: 20141203
  7. CARDIRENE [Concomitant]
     Active Substance: ASPIRIN DL-LYSINE
  8. INEGY [Concomitant]
     Active Substance: EZETIMIBE\SIMVASTATIN
  9. CUMADIN [Concomitant]
     Active Substance: WARFARIN SODIUM
  10. LANTUS [Concomitant]
     Active Substance: INSULIN GLARGINE
  11. RAPAMUNE [Suspect]
     Active Substance: SIROLIMUS
     Indication: RENAL TRANSPLANT
     Dosage: 0.5 MG, DAILY
     Route: 048
     Dates: start: 20010101, end: 20141203
  12. CELLCEPT [Concomitant]
     Active Substance: MYCOPHENOLATE MOFETIL\MYCOPHENOLATE MOFETIL HYDROCHLORIDE
     Indication: RENAL TRANSPLANT
     Dosage: 2 DF, UNK
     Dates: start: 20010101, end: 20141203
  13. DILATREND [Concomitant]
     Active Substance: CARVEDILOL

REACTIONS (2)
  - Pulmonary fibrosis [Not Recovered/Not Resolved]
  - Pulmonary hypertension [Not Recovered/Not Resolved]

NARRATIVE: CASE EVENT DATE: 20141203
